FAERS Safety Report 17851635 (Version 1)
Quarter: 2020Q2

REPORT INFORMATION
  Report Type: Spontaneous
  Country: US (occurrence: US)
  Receive Date: 20200602
  Receipt Date: 20200602
  Transmission Date: 20200714
  Serious: Yes (Other)
  Sender: FDA-Public Use
  Company Number: US-TEVA-2020-US-1242214

PATIENT
  Age: 85 Year
  Sex: Female

DRUGS (1)
  1. NITROFURANTOIN. [Suspect]
     Active Substance: NITROFURANTOIN
     Indication: URINARY TRACT INFECTION
     Route: 065

REACTIONS (9)
  - Pyrexia [Recovering/Resolving]
  - Drug hypersensitivity [Recovering/Resolving]
  - Rash pruritic [Recovering/Resolving]
  - Myalgia [Recovering/Resolving]
  - Fatigue [Recovered/Resolved]
  - Arthralgia [Recovered/Resolved]
  - Interstitial lung disease [Unknown]
  - Eosinophilia [Recovering/Resolving]
  - Chills [Recovering/Resolving]
